FAERS Safety Report 11612331 (Version 2)
Quarter: 2016Q1

REPORT INFORMATION
  Report Type: Spontaneous
  Country: RU (occurrence: RU)
  Receive Date: 20151008
  Receipt Date: 20160129
  Transmission Date: 20160525
  Serious: Yes (Other)
  Sender: FDA-Public Use
  Company Number: RU-ABBVIE-15P-251-1477775-00

PATIENT
  Age: 37 Year
  Sex: Male

DRUGS (1)
  1. KLACID [Suspect]
     Active Substance: CLARITHROMYCIN
     Indication: SINUSITIS
     Route: 048
     Dates: start: 2014

REACTIONS (2)
  - Myocardial infarction [Recovered/Resolved]
  - Angina pectoris [Recovered/Resolved]

NARRATIVE: CASE EVENT DATE: 2014
